FAERS Safety Report 7488882-0 (Version None)
Quarter: 2011Q2

REPORT INFORMATION
  Report Type: 
  Country: None (occurrence: None)
  Receive Date: 20110518
  Receipt Date: 20110505
  Transmission Date: 20111010
  Serious: Yes (Other)
  Sender: FDA-Public Use
  Company Number: PHHY2011NL23538

PATIENT
  Age: 15 Year
  Sex: Female

DRUGS (4)
  1. BUSPIRONE HCL [Concomitant]
     Dosage: 10 MG, TID
  2. DEXTROAMPHETAMINE [Suspect]
     Dosage: 5 MG, QID
  3. DEXAMETHASONE [Suspect]
     Indication: ATTENTION DEFICIT/HYPERACTIVITY DISORDER
     Dosage: 90 DF, UNK
  4. DEXTROAMPHETAMINE [Suspect]
     Indication: ATTENTION DEFICIT/HYPERACTIVITY DISORDER
     Dosage: UNK UKN, NO TREATMENT

REACTIONS (13)
  - INCREASED APPETITE [None]
  - ABNORMAL BEHAVIOUR [None]
  - SWELLING [None]
  - JOINT SWELLING [None]
  - CUSHING'S SYNDROME [None]
  - SWELLING FACE [None]
  - DRUG DISPENSING ERROR [None]
  - ABDOMINAL DISTENSION [None]
  - MENSTRUAL DISORDER [None]
  - LEUKOCYTOSIS [None]
  - ACNE [None]
  - SKIN STRIAE [None]
  - WEIGHT INCREASED [None]
